FAERS Safety Report 9675911 (Version 1)
Quarter: 2013Q4

REPORT INFORMATION
  Report Type: Spontaneous
  Country: US (occurrence: US)
  Receive Date: 20131107
  Receipt Date: 20131107
  Transmission Date: 20140711
  Serious: Yes (Hospitalization)
  Sender: FDA-Public Use
  Company Number: US-MYLANLABS-2013S1024471

PATIENT
  Age: 7 Year
  Sex: Male

DRUGS (1)
  1. CLONIDINE [Suspect]
     Indication: OVERDOSE
     Dosage: MORNING DOSE; RECEIVED 2.5ML OF SUSPENSION CONTAINING 4.5G OF CLONIDINE INSTEAD OF 4.5MG
     Route: 065

REACTIONS (7)
  - Hypertension [Recovering/Resolving]
  - Overdose [Recovering/Resolving]
  - Drug dispensing error [Recovering/Resolving]
  - Lethargy [Recovering/Resolving]
  - Miosis [Recovering/Resolving]
  - Tachycardia [Recovering/Resolving]
  - Respiratory depression [Recovering/Resolving]
